FAERS Safety Report 4853899-9 (Version None)
Quarter: 2005Q4

REPORT INFORMATION
  Report Type: 
  Country: None (occurrence: None)
  Receive Date: 20051214
  Receipt Date: 20050718
  Transmission Date: 20060501
  Serious: Yes (Hospitalization)
  Sender: FDA-Public Use
  Company Number: US-MERCK-0507USA02891

PATIENT
  Age: 73 Year
  Sex: Female
  Weight: 75 kg

DRUGS (4)
  1. VIOXX [Suspect]
     Indication: ARTHRITIS
     Route: 048
     Dates: start: 20011005, end: 20011112
  2. HYDROCHLOROTHIAZIDE AND TRIAMTERENE [Concomitant]
     Route: 065
  3. TAGAMET [Concomitant]
     Route: 065
  4. PROTONIX [Concomitant]
     Route: 065

REACTIONS (6)
  - BACK PAIN [None]
  - CHEST PAIN [None]
  - COUGH [None]
  - INJURY [None]
  - MYOCARDIAL INFARCTION [None]
  - PULMONARY CONGESTION [None]
